FAERS Safety Report 9360940 (Version 2)
Quarter: 2013Q2

REPORT INFORMATION
  Report Type: Spontaneous
  Country: PL (occurrence: PL)
  Receive Date: 20130621
  Receipt Date: 20130627
  Transmission Date: 20140414
  Serious: Yes (Hospitalization)
  Sender: FDA-Public Use
  Company Number: PL-ABBOTT-13P-129-1105222-00

PATIENT
  Age: 53 Year
  Sex: Male
  Weight: 91 kg

DRUGS (3)
  1. HUMIRA [Suspect]
     Indication: ANKYLOSING SPONDYLITIS
     Route: 058
     Dates: start: 20121221, end: 20130329
  2. PRESTARIUM [Concomitant]
     Indication: HYPERTENSION
     Route: 048
  3. EUTHYROX (LEVOTHYROXIUM NATRICUM) [Concomitant]
     Indication: HYPOTHYROIDISM
     Route: 048

REACTIONS (2)
  - Supraventricular tachycardia [Recovered/Resolved]
  - Vertigo [Recovered/Resolved]
